FAERS Safety Report 6709487-2 (Version None)
Quarter: 2010Q2

REPORT INFORMATION
  Report Type: 
  Country: None (occurrence: None)
  Receive Date: 20100504
  Receipt Date: 20100426
  Transmission Date: 20101027
  Serious: Yes (Other)
  Sender: FDA-Public Use
  Company Number: US-BAYER-201018338NA

PATIENT
  Age: 53 Year
  Sex: Female

DRUGS (3)
  1. MIRENA [Suspect]
     Indication: VAGINAL HAEMORRHAGE
     Dosage: FREQUENCY: CONTINUOUS
     Route: 015
     Dates: start: 20100319, end: 20100326
  2. LEVAQUIN [Concomitant]
  3. VIVELLE-DOT [Concomitant]

REACTIONS (1)
  - UTERINE PERFORATION [None]
